FAERS Safety Report 13929967 (Version 1)
Quarter: 2017Q3

REPORT INFORMATION
  Report Type: Spontaneous
  Country: US (occurrence: US)
  Receive Date: 20170901
  Receipt Date: 20170901
  Transmission Date: 20171127
  Serious: No
  Sender: FDA-Public Use
  Company Number: US-009507513-1709USA000345

PATIENT
  Age: 24 Year
  Sex: Female
  Weight: 61.22 kg

DRUGS (1)
  1. NUVARING [Suspect]
     Active Substance: ETHINYL ESTRADIOL\ETONOGESTREL
     Indication: CONTRACEPTION
     Dosage: 1 RING, QM
     Route: 067
     Dates: start: 201706

REACTIONS (2)
  - Nodule [Unknown]
  - Skin mass [Unknown]

NARRATIVE: CASE EVENT DATE: 20170828
